FAERS Safety Report 17277890 (Version 2)
Quarter: 2020Q1

REPORT INFORMATION
  Report Type: Spontaneous
  Country: HK (occurrence: HK)
  Receive Date: 20200116
  Receipt Date: 20200327
  Transmission Date: 20200409
  Serious: Yes (Other)
  Sender: FDA-Public Use
  Company Number: HK-VALIDUS PHARMACEUTICALS LLC-HK-2020VAL000035

PATIENT
  Age: 37 Year
  Sex: Female

DRUGS (3)
  1. CARBAMAZEPINE. [Suspect]
     Active Substance: CARBAMAZEPINE
     Dosage: TAPERED OFF
     Route: 065
     Dates: end: 200509
  2. IMMUNOGLOBULIN                     /07494701/ [Concomitant]
     Active Substance: IMMUNE GLOBULIN NOS
     Indication: IMMUNODEFICIENCY COMMON VARIABLE
     Dosage: 22.5 G, EVERY MONTH
     Route: 042
     Dates: start: 200202, end: 201607
  3. CARBAMAZEPINE. [Suspect]
     Active Substance: CARBAMAZEPINE
     Indication: SEIZURE
     Dosage: 400 MG, BID
     Route: 065
     Dates: start: 200105

REACTIONS (2)
  - Selective IgA immunodeficiency [Not Recovered/Not Resolved]
  - B-cell aplasia [Recovered/Resolved]
